FAERS Safety Report 15283747 (Version 2)
Quarter: 2018Q3

REPORT INFORMATION
  Report Type: Report from Study
  Country: US (occurrence: US)
  Receive Date: 20180816
  Receipt Date: 20180830
  Transmission Date: 20181010
  Serious: Yes (Death)
  Sender: FDA-Public Use
  Company Number: US-ASTRAZENECA-2017SE65618

PATIENT
  Age: 27997 Day
  Sex: Female
  Weight: 62 kg

DRUGS (1)
  1. TAGRISSO [Suspect]
     Active Substance: OSIMERTINIB
     Indication: LUNG NEOPLASM MALIGNANT
     Route: 048
     Dates: start: 20170501, end: 20180607

REACTIONS (3)
  - Sarcoma [Fatal]
  - Diarrhoea [Unknown]
  - Metastases to lung [Fatal]

NARRATIVE: CASE EVENT DATE: 20170618
